FAERS Safety Report 19183474 (Version 3)
Quarter: 2025Q1

REPORT INFORMATION
  Report Type: Report from Study
  Country: US (occurrence: US)
  Receive Date: 20210427
  Receipt Date: 20250318
  Transmission Date: 20250408
  Serious: Yes (Hospitalization)
  Sender: TAKEDA
  Company Number: US-TAKEDA-2021TUS024897

PATIENT
  Sex: Female
  Weight: 90.24 kg

DRUGS (18)
  1. IXAZOMIB [Suspect]
     Active Substance: IXAZOMIB
     Indication: Plasma cell myeloma
     Dosage: 4 MILLIGRAM, QD
     Dates: start: 20200504
  2. IXAZOMIB [Suspect]
     Active Substance: IXAZOMIB
     Dosage: 4 MILLIGRAM, 1/WEEK
     Dates: start: 202312
  3. IXAZOMIB [Suspect]
     Active Substance: IXAZOMIB
     Dosage: 4 MILLIGRAM, 1/WEEK
  4. VELCADE [Suspect]
     Active Substance: BORTEZOMIB
     Indication: Plasma cell myeloma
  5. REVLIMID [Suspect]
     Active Substance: LENALIDOMIDE
     Indication: Plasma cell myeloma
     Dosage: 25 MILLIGRAM, QD
     Dates: start: 201908
  6. REVLIMID [Suspect]
     Active Substance: LENALIDOMIDE
  7. LENALIDOMIDE [Concomitant]
     Active Substance: LENALIDOMIDE
  8. ONDANSETRON HYDROCHLORIDE [Concomitant]
     Active Substance: ONDANSETRON HYDROCHLORIDE
  9. GABAPENTIN [Concomitant]
     Active Substance: GABAPENTIN
  10. POTASSIUM CHLORIDE [Concomitant]
     Active Substance: POTASSIUM CHLORIDE
  11. INSULIN LISPRO JUNIOR KWIKPEN [Concomitant]
     Active Substance: INSULIN LISPRO
  12. DEXAMETHASONE [Concomitant]
     Active Substance: DEXAMETHASONE
  13. ASPIRIN [Concomitant]
     Active Substance: ASPIRIN
  14. TRESIBA [Concomitant]
     Active Substance: INSULIN DEGLUDEC
  15. LISINOPRIL [Concomitant]
     Active Substance: LISINOPRIL
  16. FARXIGA [Concomitant]
     Active Substance: DAPAGLIFLOZIN PROPANEDIOL
  17. GLIPIZIDE [Concomitant]
     Active Substance: GLIPIZIDE
  18. ACYCLOVIR [Concomitant]
     Active Substance: ACYCLOVIR

REACTIONS (6)
  - Hernia [Unknown]
  - Dry skin [Unknown]
  - Paraesthesia [Unknown]
  - Full blood count increased [Unknown]
  - Arteriosclerosis [Unknown]
  - Nausea [Unknown]
